FAERS Safety Report 19182592 (Version 1)
Quarter: 2021Q2

REPORT INFORMATION
  Report Type: Spontaneous
  Country: FR (occurrence: FR)
  Receive Date: 20210427
  Receipt Date: 20210427
  Transmission Date: 20210717
  Serious: Yes (Death, Other)
  Sender: FDA-Public Use
  Company Number: FR-CADILA HEALTHCARE LIMITED-FR-ZYDUS-032886

PATIENT

DRUGS (9)
  1. TERALITHE [Suspect]
     Active Substance: LITHIUM CARBONATE
     Indication: BIPOLAR DISORDER
     Dosage: UNK
     Route: 048
     Dates: start: 20180917, end: 20181002
  2. VALPROATE SODIUM. [Suspect]
     Active Substance: VALPROATE SODIUM
     Indication: BIPOLAR DISORDER
     Dosage: 500 MG LP
     Route: 048
     Dates: start: 20180807, end: 20181002
  3. CHOLECALCIFEROL [Concomitant]
     Active Substance: CHOLECALCIFEROL
     Indication: PRODUCT USED FOR UNKNOWN INDICATION
     Dosage: UNK
  4. MACROGOL 1000 [Concomitant]
     Indication: PRODUCT USED FOR UNKNOWN INDICATION
     Dosage: UNK
  5. PARACETAMOL [Concomitant]
     Active Substance: ACETAMINOPHEN
     Indication: PRODUCT USED FOR UNKNOWN INDICATION
     Dosage: UNK
  6. DIFFU K [Concomitant]
     Active Substance: POTASSIUM CHLORIDE
     Indication: PRODUCT USED FOR UNKNOWN INDICATION
     Dosage: UNK
  7. CLAVULANIC ACID [Suspect]
     Active Substance: CLAVULANIC ACID
     Indication: PNEUMONIA ASPIRATION
     Route: 048
     Dates: start: 20180925, end: 20181002
  8. OLANZAPINE. [Suspect]
     Active Substance: OLANZAPINE
     Indication: BIPOLAR DISORDER
     Dosage: 15 MILLIGRAM
     Route: 048
     Dates: start: 20180924, end: 20181002
  9. AMOXICILLIN. [Suspect]
     Active Substance: AMOXICILLIN
     Indication: PNEUMONIA ASPIRATION
     Dosage: UNK
     Route: 048
     Dates: start: 20180925, end: 20181002

REACTIONS (4)
  - Hypernatraemia [Recovered/Resolved]
  - Toxicity to various agents [Fatal]
  - Hyperleukocytosis [Recovered/Resolved]
  - Encephalopathy [Fatal]

NARRATIVE: CASE EVENT DATE: 20181002
